FAERS Safety Report 20525018 (Version 1)
Quarter: 2022Q1

REPORT INFORMATION
  Report Type: Spontaneous
  Country: CA (occurrence: CA)
  Receive Date: 20220228
  Receipt Date: 20220228
  Transmission Date: 20220423
  Serious: Yes (Other)
  Sender: FDA-Public Use
  Company Number: None

PATIENT
  Age: 67 Year
  Sex: Female

DRUGS (10)
  1. METHOTREXATE [Suspect]
     Active Substance: METHOTREXATE
     Indication: Product used for unknown indication
     Dosage: 1 EVERY 1 WEEKS
     Route: 048
  2. ASPIRIN [Concomitant]
     Active Substance: ASPIRIN
     Dosage: 1 EVERY 1 DAYS
  3. LIRAGLUTIDE [Concomitant]
     Active Substance: LIRAGLUTIDE
     Dosage: 1 EVERY 1 DAYS
     Route: 058
  4. METFORMIN [Concomitant]
     Active Substance: METFORMIN HYDROCHLORIDE
     Dosage: 1 EVERY 1 DAYS
  5. PENTASA [Concomitant]
     Active Substance: MESALAMINE
     Dosage: 1 EVERY 1 DAYS
  6. RAMIPRIL [Concomitant]
     Active Substance: RAMIPRIL
     Dosage: 1 EVERY 1 DAYS
  7. SIMVASTATIN [Concomitant]
     Active Substance: SIMVASTATIN
     Dosage: 1 EVERY 1 DAYS
  8. TRAMADOL [Concomitant]
     Active Substance: TRAMADOL
     Dosage: AS REQUIRED
  9. VEDOLIZUMAB [Concomitant]
     Active Substance: VEDOLIZUMAB
  10. XENICAL [Concomitant]
     Active Substance: ORLISTAT

REACTIONS (5)
  - Fatigue [Not Recovered/Not Resolved]
  - Hypothyroidism [Not Recovered/Not Resolved]
  - Nausea [Not Recovered/Not Resolved]
  - Pain [Not Recovered/Not Resolved]
  - Condition aggravated [Unknown]
